FAERS Safety Report 6369936-9 (Version None)
Quarter: 2009Q3

REPORT INFORMATION
  Report Type: 
  Country: None (occurrence: None)
  Receive Date: 20090923
  Receipt Date: 20070320
  Transmission Date: 20100115
  Serious: No
  Sender: FDA-Public Use
  Company Number: US-ASTRAZENECA-2006UW11150

PATIENT
  Age: 18865 Day
  Sex: Female
  Weight: 86.2 kg

DRUGS (22)
  1. SEROQUEL [Suspect]
     Indication: RESTLESSNESS
     Dosage: 25 MG - 800 MG DAILY
     Route: 048
     Dates: start: 20021018, end: 20050617
  2. SEROQUEL [Suspect]
     Indication: PSYCHOTIC DISORDER
     Dosage: 25 MG - 800 MG DAILY
     Route: 048
     Dates: start: 20021018, end: 20050617
  3. SEROQUEL [Suspect]
     Indication: ANXIETY
     Dosage: 25 MG - 800 MG DAILY
     Route: 048
     Dates: start: 20021018, end: 20050617
  4. SEROQUEL [Suspect]
     Indication: OEDEMA PERIPHERAL
     Dosage: 25 MG - 800 MG DAILY
     Route: 048
     Dates: start: 20021018, end: 20050617
  5. SEROQUEL [Suspect]
     Dosage: 200 MG - 600 MG DAILY
     Route: 048
     Dates: start: 20050617, end: 20061027
  6. SEROQUEL [Suspect]
     Dosage: 200 MG - 600 MG DAILY
     Route: 048
     Dates: start: 20050617, end: 20061027
  7. SEROQUEL [Suspect]
     Dosage: 200 MG - 600 MG DAILY
     Route: 048
     Dates: start: 20050617, end: 20061027
  8. SEROQUEL [Suspect]
     Dosage: 200 MG - 600 MG DAILY
     Route: 048
     Dates: start: 20050617, end: 20061027
  9. ZYPREXA [Suspect]
     Dosage: 10 MG - 20 MG DAILY
     Route: 048
     Dates: start: 20010817
  10. WELLBUTRIN SR [Concomitant]
     Indication: DEPRESSION
     Route: 048
     Dates: start: 19981012
  11. ATIVAN [Concomitant]
     Route: 048
     Dates: start: 20021202
  12. SYNTHROID [Concomitant]
     Indication: THYROID DISORDER
     Route: 048
     Dates: start: 20050617
  13. DEPAKOTE [Concomitant]
     Dosage: 375MG - 1000 MG DAILY
     Route: 048
     Dates: start: 19981210
  14. ALPRAZOLAM [Concomitant]
     Indication: ANXIETY
     Route: 048
     Dates: start: 20060727
  15. SINGULAIR [Concomitant]
     Route: 048
     Dates: start: 20050929
  16. LIPITOR [Concomitant]
     Route: 048
     Dates: start: 20040115
  17. ADVAIR HFA [Concomitant]
     Indication: BRONCHITIS
     Dosage: TWO PUFS TWO TIMES A DAY
     Route: 045
     Dates: start: 20050823
  18. ATROVENT [Concomitant]
     Indication: BRONCHITIS
     Dosage: TWO PUFFS FOUR TIMES A DAY
     Route: 045
     Dates: start: 20021019
  19. CELEXA [Concomitant]
     Route: 048
     Dates: start: 20050617, end: 20051202
  20. LITHIUM CARBONATE [Concomitant]
     Route: 048
     Dates: start: 19951102
  21. LEXAPRO [Concomitant]
     Route: 048
     Dates: start: 20040115
  22. CLONIDINE [Concomitant]
     Dosage: 1 MG AS REQUIRED
     Route: 048
     Dates: start: 20021021

REACTIONS (3)
  - METABOLIC SYNDROME [None]
  - TYPE 2 DIABETES MELLITUS [None]
  - WEIGHT INCREASED [None]
